FAERS Safety Report 21725116 (Version 2)
Quarter: 2024Q4

REPORT INFORMATION
  Report Type: Spontaneous
  Country: US (occurrence: US)
  Receive Date: 20221214
  Receipt Date: 20241016
  Transmission Date: 20250114
  Serious: No
  Sender: NOVARTIS
  Company Number: US-002147023-NVSC2022US287082

PATIENT
  Sex: Female
  Weight: 72.57 kg

DRUGS (2)
  1. KISQALI [Suspect]
     Active Substance: RIBOCICLIB
     Indication: Product used for unknown indication
     Dosage: UNK
     Route: 065
  2. IBRANCE [Suspect]
     Active Substance: PALBOCICLIB
     Indication: Breast cancer metastatic
     Dosage: 125 MG (3 WEEKS ON AND 1 WEEK OFF)
     Route: 065
     Dates: start: 202208, end: 20221101

REACTIONS (2)
  - Pain [Unknown]
  - Drug ineffective [Unknown]
